FAERS Safety Report 17103643 (Version 1)
Quarter: 2019Q4

REPORT INFORMATION
  Report Type: Spontaneous
  Country: GR (occurrence: GR)
  Receive Date: 20191203
  Receipt Date: 20191203
  Transmission Date: 20200122
  Serious: Yes (Other)
  Sender: FDA-Public Use
  Company Number: GR-AUROBINDO-AUR-APL-2019-076285

PATIENT
  Age: 62 Year
  Sex: Male

DRUGS (1)
  1. AMOXICILLIN+CLAVULANIC ACID [Suspect]
     Active Substance: AMOXICILLIN\CLAVULANIC ACID
     Indication: PHARYNGOTONSILLITIS
     Dosage: UNK
     Route: 065

REACTIONS (4)
  - Drug ineffective [Unknown]
  - No adverse event [Unknown]
  - Rheumatic fever [Unknown]
  - Carditis [Unknown]
